FAERS Safety Report 7596313-5 (Version None)
Quarter: 2011Q3

REPORT INFORMATION
  Report Type: 
  Country: None (occurrence: None)
  Receive Date: 20110707
  Receipt Date: 20110623
  Transmission Date: 20111222
  Serious: Yes (Other)
  Sender: FDA-Public Use
  Company Number: GB-MYLANLABS-2009S1000283

PATIENT
  Age: 7 Year
  Sex: Male

DRUGS (6)
  1. DACTINOMYCIN [Suspect]
     Indication: RHABDOMYOSARCOMA
  2. VINCRISTINE [Suspect]
     Indication: RHABDOMYOSARCOMA
  3. EPIRUBICIN HYDROCHLORIDE [Suspect]
     Indication: RHABDOMYOSARCOMA
  4. ETOPOSIDE [Suspect]
     Indication: RHABDOMYOSARCOMA
  5. CARBOPLATIN [Suspect]
     Indication: RHABDOMYOSARCOMA
  6. IFOSFAMIDE [Suspect]
     Indication: RHABDOMYOSARCOMA

REACTIONS (1)
  - THYROID CANCER [None]
